FAERS Safety Report 5407220-8 (Version None)
Quarter: 2007Q3

REPORT INFORMATION
  Report Type: 
  Country: None (occurrence: None)
  Receive Date: 20070807
  Receipt Date: 20070801
  Transmission Date: 20080115
  Serious: Yes (Hospitalization)
  Sender: FDA-Public Use
  Company Number: A0667649A

PATIENT
  Age: 67 Year
  Sex: Male

DRUGS (4)
  1. AVANDIA [Suspect]
     Dosage: 4MG PER DAY
     Route: 048
     Dates: start: 20000101
  2. ASPIRIN [Concomitant]
  3. LIPITOR [Concomitant]
  4. UNKNOWN DIURETIC [Concomitant]

REACTIONS (5)
  - CARDIOVASCULAR DISORDER [None]
  - JOINT SWELLING [None]
  - LEG AMPUTATION [None]
  - MYOCARDIAL INFARCTION [None]
  - RENAL FAILURE ACUTE [None]
